FAERS Safety Report 7608130-8 (Version None)
Quarter: 2011Q3

REPORT INFORMATION
  Report Type: 
  Country: None (occurrence: None)
  Receive Date: 20110714
  Receipt Date: 20110708
  Transmission Date: 20111222
  Serious: Yes (Life-Threatening, Other)
  Sender: FDA-Public Use
  Company Number: US-ELI_LILLY_AND_COMPANY-US201104000196

PATIENT
  Sex: Male
  Weight: 109 kg

DRUGS (5)
  1. PNEUMOCOCCAL VACCINE [Concomitant]
  2. ONDASETRON [Concomitant]
  3. OXYCODONE AND ACETAMINOPHEN [Concomitant]
  4. EFFIENT [Suspect]
     Indication: PERCUTANEOUS CORONARY INTERVENTION
     Dosage: 10 MG, QD
     Route: 048
     Dates: start: 20110128
  5. NITROGLYCERIN [Concomitant]
     Dosage: 0.5 IN
     Dates: start: 20110127

REACTIONS (1)
  - CORONARY ARTERY OCCLUSION [None]
